FAERS Safety Report 8183658-3 (Version None)
Quarter: 2012Q1

REPORT INFORMATION
  Report Type: 
  Country: None (occurrence: None)
  Receive Date: 20120305
  Receipt Date: 20120223
  Transmission Date: 20120608
  Serious: Yes (Hospitalization, Other)
  Sender: FDA-Public Use
  Company Number: PHHY2012BR015934

PATIENT
  Sex: Female

DRUGS (4)
  1. ALPRAZOLAM [Concomitant]
  2. DIOVAN HCT [Suspect]
     Dosage: 1 TABLET PER DAY
     Dates: start: 20111121
  3. DIOVAN HCT [Suspect]
     Dosage: 80/12.5
  4. LEXOTAN [Concomitant]

REACTIONS (4)
  - WRIST FRACTURE [None]
  - BLOOD PRESSURE FLUCTUATION [None]
  - VISUAL IMPAIRMENT [None]
  - FALL [None]
